FAERS Safety Report 6275519-1 (Version None)
Quarter: 2009Q3

REPORT INFORMATION
  Report Type: 
  Country: None (occurrence: None)
  Receive Date: 20090721
  Receipt Date: 20090709
  Transmission Date: 20100115
  Serious: Yes (Other)
  Sender: FDA-Public Use
  Company Number: KR-PFIZER INC-2009239750

PATIENT

DRUGS (1)
  1. HALCION [Suspect]
     Route: 048

REACTIONS (2)
  - PARALYSIS [None]
  - TONGUE PARALYSIS [None]
